FAERS Safety Report 6858875-2 (Version None)
Quarter: 2010Q3

REPORT INFORMATION
  Report Type: 
  Country: None (occurrence: None)
  Receive Date: 20100719
  Receipt Date: 20080310
  Transmission Date: 20110219
  Serious: Yes (Other)
  Sender: FDA-Public Use
  Company Number: US-PFIZER INC-2008014230

PATIENT
  Sex: Male
  Weight: 70.8 kg

DRUGS (2)
  1. CHANTIX [Suspect]
     Indication: SMOKING CESSATION THERAPY
     Route: 048
     Dates: start: 20071112, end: 20071201
  2. ALL OTHER THERAPEUTIC PRODUCTS [Concomitant]
     Indication: ULCER
     Dates: start: 20071101

REACTIONS (6)
  - ABNORMAL DREAMS [None]
  - COLONOSCOPY [None]
  - INSOMNIA [None]
  - NERVOUSNESS [None]
  - OESOPHAGOGASTRODUODENOSCOPY [None]
  - SUICIDAL IDEATION [None]
